FAERS Safety Report 7250696-4 (Version None)
Quarter: 2011Q1

REPORT INFORMATION
  Report Type: 
  Country: None (occurrence: None)
  Receive Date: 20110128
  Receipt Date: 20110118
  Transmission Date: 20110831
  Serious: Yes (Disabling, Other)
  Sender: FDA-Public Use
  Company Number: GB-JNJFOC-20101106451

PATIENT
  Sex: Male
  Weight: 102 kg

DRUGS (3)
  1. METHOTREXATE [Concomitant]
     Indication: PSORIASIS
     Route: 048
  2. STELARA [Suspect]
     Indication: PSORIASIS
     Route: 058
  3. STELARA [Suspect]
     Route: 058

REACTIONS (4)
  - PUSTULAR PSORIASIS [None]
  - PAIN [None]
  - PSORIASIS [None]
  - DRUG INEFFECTIVE [None]
